FAERS Safety Report 21136910 (Version 1)
Quarter: 2022Q3

REPORT INFORMATION
  Report Type: Spontaneous
  Country: US (occurrence: None)
  Receive Date: 20220726
  Receipt Date: 20220726
  Transmission Date: 20221027
  Serious: Yes (Other)
  Sender: FDA-Public Use
  Company Number: None

PATIENT
  Age: 39 Year
  Sex: Female
  Weight: 38.25 kg

DRUGS (8)
  1. AMLODIPINE [Suspect]
     Active Substance: AMLODIPINE BESYLATE
     Indication: Product used for unknown indication
     Dosage: OTHER QUANTITY : 1 TABLET(S);?FREQUENCY : 4 TIMES A DAY;?
     Route: 048
     Dates: start: 20220618, end: 20220724
  2. AMILORIDE [Suspect]
     Active Substance: AMILORIDE
  3. LEVOTHYROXINE [Concomitant]
     Active Substance: LEVOTHYROXINE
  4. POTASSIUM CHLORIDE [Concomitant]
     Active Substance: POTASSIUM CHLORIDE
  5. slowmag [Concomitant]
  6. AMILORIDE [Concomitant]
     Active Substance: AMILORIDE
  7. DICYCLOMINE [Concomitant]
     Active Substance: DICYCLOMINE HYDROCHLORIDE
  8. FISH OIL [Concomitant]
     Active Substance: FISH OIL

REACTIONS (8)
  - Headache [None]
  - Palpitations [None]
  - Product dispensing error [None]
  - Wrong product administered [None]
  - Emotional distress [None]
  - Peripheral swelling [None]
  - Joint swelling [None]
  - Peripheral swelling [None]

NARRATIVE: CASE EVENT DATE: 20220703
